FAERS Safety Report 25871425 (Version 1)
Quarter: 2025Q4

REPORT INFORMATION
  Report Type: Spontaneous
  Country: US (occurrence: US)
  Receive Date: 20251001
  Receipt Date: 20251001
  Transmission Date: 20260118
  Serious: Yes (Other)
  Sender: GENMAB
  Company Number: US-GENMAB-2025-02944

PATIENT
  Sex: Female

DRUGS (1)
  1. EPCORITAMAB [Suspect]
     Active Substance: EPCORITAMAB
     Dosage: UNK (FIRST CYCLE)
     Route: 065

REACTIONS (1)
  - Cytomegalovirus infection reactivation [Unknown]
